FAERS Safety Report 22702809 (Version 2)
Quarter: 2025Q2

REPORT INFORMATION
  Report Type: Spontaneous
  Country: DE (occurrence: DE)
  Receive Date: 20230713
  Receipt Date: 20250611
  Transmission Date: 20250717
  Serious: Yes (Other)
  Sender: BRISTOL-MYERS SQUIBB COMPANY
  Company Number: DE-BRISTOL-MYERS SQUIBB COMPANY-2023-098088

PATIENT
  Age: 56 Year
  Sex: Male

DRUGS (4)
  1. NIVOLUMAB [Suspect]
     Active Substance: NIVOLUMAB
     Indication: Non-small cell lung cancer
     Dates: start: 202111
  2. IPILIMUMAB [Suspect]
     Active Substance: IPILIMUMAB
     Indication: Non-small cell lung cancer
     Dates: start: 202111
  3. CARBOPLATIN [Suspect]
     Active Substance: CARBOPLATIN
     Indication: Non-small cell lung cancer
     Dates: start: 202111
  4. PACLITAXEL [Suspect]
     Active Substance: PACLITAXEL
     Indication: Non-small cell lung cancer
     Dates: start: 202111

REACTIONS (9)
  - Polyneuropathy [Unknown]
  - Radiation oesophagitis [Unknown]
  - Pneumonitis [Recovered/Resolved]
  - Cardiac failure [Unknown]
  - Cough [Unknown]
  - Dyspnoea exertional [Unknown]
  - Arrhythmia induced cardiomyopathy [Unknown]
  - Supraventricular tachycardia [Unknown]
  - Brain natriuretic peptide decreased [Unknown]

NARRATIVE: CASE EVENT DATE: 20211101
